FAERS Safety Report 4862408-X (Version None)
Quarter: 2005Q4

REPORT INFORMATION
  Report Type: 
  Country: None (occurrence: None)
  Receive Date: 20051221
  Receipt Date: 20051208
  Transmission Date: 20060501
  Serious: Yes (Life-Threatening)
  Sender: FDA-Public Use
  Company Number: FR-JNJFOC-20051202000

PATIENT
  Age: 3 Year
  Sex: Male
  Weight: 14 kg

DRUGS (6)
  1. EPITOMAX [Suspect]
     Dosage: PROGRESSIVE INCREASE OF DOSE.
     Route: 048
     Dates: start: 20050823
  2. EPITOMAX [Suspect]
     Indication: EPILEPSY
     Dosage: PROGRESSIVELY INCREASED TO 50MG.
     Route: 048
     Dates: start: 20050823
  3. SOLU-MEDROL [Concomitant]
  4. RIVOTRIL [Concomitant]
  5. MOPRAL [Concomitant]
  6. TEGRETOL [Concomitant]

REACTIONS (1)
  - ANOREXIA [None]
